FAERS Safety Report 24043576 (Version 1)
Quarter: 2024Q3

REPORT INFORMATION
  Report Type: Spontaneous
  Country: CN (occurrence: CN)
  Receive Date: 20240703
  Receipt Date: 20240703
  Transmission Date: 20241016
  Serious: Yes (Other)
  Sender: ROCHE
  Company Number: CN-ROCHE-10000013925

PATIENT
  Age: 57 Year
  Sex: Female
  Weight: 59.5 kg

DRUGS (1)
  1. HERCEPTIN [Suspect]
     Active Substance: TRASTUZUMAB
     Indication: Breast cancer
     Route: 042
     Dates: start: 20240603, end: 20240603

REACTIONS (1)
  - Myocardial injury [Recovered/Resolved]

NARRATIVE: CASE EVENT DATE: 20240625
